FAERS Safety Report 9057755 (Version 1)
Quarter: 2013Q1

REPORT INFORMATION
  Report Type: Spontaneous
  Country: US (occurrence: US)
  Receive Date: 20130204
  Receipt Date: 20130204
  Transmission Date: 20140127
  Serious: No
  Sender: FDA-Public Use
  Company Number: US-TEVA-383889USA

PATIENT
  Sex: Female
  Weight: 90.8 kg

DRUGS (5)
  1. COPAXONE [Suspect]
     Dosage: 20 MILLIGRAM DAILY;
     Route: 058
     Dates: start: 200403
  2. LEVOTHYROXINE SODIUM [Concomitant]
     Indication: HYPOTHYROIDISM
  3. MELOXICAM [Concomitant]
  4. ACETAMINOPHEN W/OXYCODONE [Concomitant]
  5. FLECTOR [Concomitant]

REACTIONS (1)
  - Arthritis [Not Recovered/Not Resolved]
